FAERS Safety Report 4312116-9 (Version None)
Quarter: 2004Q1

REPORT INFORMATION
  Report Type: 
  Country: None (occurrence: None)
  Receive Date: 20040303
  Receipt Date: 20040216
  Transmission Date: 20041129
  Serious: Yes (Hospitalization)
  Sender: FDA-Public Use
  Company Number: 2003-NL-00133NL

PATIENT
  Age: 61 Year
  Sex: Male

DRUGS (4)
  1. SPIRIVA [Suspect]
     Indication: CHRONIC OBSTRUCTIVE AIRWAYS DISEASE
     Dosage: 18 MCG (18 MCG, 1 IN 1 D)
     Route: 025
     Dates: start: 20030428, end: 20030716
  2. SYMBICORT (AEP) [Concomitant]
  3. TRIAMCINOLON (CR) [Concomitant]
  4. HYDROCOBAMINE (HYDROXOCOBALAMIN HYDROCHLORIDE) (AM) [Concomitant]

REACTIONS (1)
  - PARKINSONISM [None]
